FAERS Safety Report 5759334-0 (Version None)
Quarter: 2008Q2

REPORT INFORMATION
  Report Type: 
  Country: None (occurrence: None)
  Receive Date: 20080605
  Receipt Date: 20080528
  Transmission Date: 20081010
  Serious: Yes (Death, Hospitalization)
  Sender: FDA-Public Use
  Company Number: SE-WYE-G01603908

PATIENT
  Age: 42 Year
  Sex: Male

DRUGS (2)
  1. VENLAFAXINE HYDROCHLORIDE [Suspect]
     Dosage: UNKNOWN
     Dates: start: 20080522, end: 20080527
  2. IMOVANE [Suspect]
     Dosage: UNKNOWN
     Dates: start: 20080522, end: 20080527

REACTIONS (4)
  - ASPHYXIA [None]
  - COMPLETED SUICIDE [None]
  - INTENTIONAL OVERDOSE [None]
  - SUICIDE ATTEMPT [None]
